FAERS Safety Report 5105273-8 (Version None)
Quarter: 2006Q3

REPORT INFORMATION
  Report Type: 
  Country: None (occurrence: None)
  Receive Date: 20060911
  Receipt Date: 20060831
  Transmission Date: 20061208
  Serious: Yes (Other)
  Sender: FDA-Public Use
  Company Number: 2006US001875

PATIENT
  Age: 79 Year
  Sex: Female

DRUGS (4)
  1. VESICARE [Suspect]
     Indication: INCONTINENCE
  2. COUMADIN [Concomitant]
  3. POTASSIUM (POTASSIUM CHLORIDE) [Concomitant]
  4. ANTIHYPERTENSIVES [Concomitant]

REACTIONS (3)
  - CARDIAC VALVE DISEASE [None]
  - DRY EYE [None]
  - DRY MOUTH [None]
